FAERS Safety Report 12133065 (Version 1)
Quarter: 2016Q1

REPORT INFORMATION
  Report Type: Spontaneous
  Country: US (occurrence: None)
  Receive Date: 20160229
  Receipt Date: 20160229
  Transmission Date: 20160526
  Serious: Yes (Disabling)
  Sender: FDA-Public Use
  Company Number: None

PATIENT
  Age: 54 Year
  Sex: Male
  Weight: 83.92 kg

DRUGS (1)
  1. CIPROFLOXACIN HCL 500MG [Suspect]
     Active Substance: CIPROFLOXACIN HYDROCHLORIDE
     Indication: PROSTATITIS
     Route: 048
     Dates: start: 20150424, end: 20150610

REACTIONS (7)
  - Anxiety [None]
  - Arthralgia [None]
  - Depressed level of consciousness [None]
  - Tendonitis [None]
  - Fatigue [None]
  - Pain [None]
  - Paraesthesia [None]

NARRATIVE: CASE EVENT DATE: 20150408
